FAERS Safety Report 8977090 (Version 1)
Quarter: 2012Q4

REPORT INFORMATION
  Report Type: 
  Country: FR (occurrence: FR)
  Receive Date: 20121219
  Receipt Date: 20121219
  Transmission Date: 20130627
  Serious: Yes (Death, Hospitalization, Other)
  Sender: FDA-Public Use
  Company Number: FR-ABBOTT-12P-056-1022356-00

PATIENT
  Age: 77 Year
  Sex: Female

DRUGS (3)
  1. MONOZECLAR [Suspect]
     Indication: BRONCHITIS
     Route: 048
     Dates: start: 20121105, end: 20121109
  2. COUMADINE [Concomitant]
     Indication: PRODUCT USED FOR UNKNOWN INDICATION
     Route: 048
  3. ARICEPT [Concomitant]
     Indication: PRODUCT USED FOR UNKNOWN INDICATION
     Route: 048
     Dates: end: 20121110

REACTIONS (7)
  - Hepatitis [Fatal]
  - Atrial tachycardia [Unknown]
  - Hepatic failure [Unknown]
  - Renal failure [Unknown]
  - Multi-organ failure [Not Recovered/Not Resolved]
  - Renal failure chronic [Not Recovered/Not Resolved]
  - Overdose [Unknown]
